FAERS Safety Report 9059726 (Version 1)
Quarter: 2013Q1

REPORT INFORMATION
  Report Type: Spontaneous
  Country: FR (occurrence: FR)
  Receive Date: 20130211
  Receipt Date: 20130211
  Transmission Date: 20140127
  Serious: Yes (Hospitalization)
  Sender: FDA-Public Use
  Company Number: FR-TEVA-384939ISR

PATIENT
  Age: 49 None
  Sex: Female

DRUGS (5)
  1. CARBOPLATINE [Suspect]
     Indication: LUNG NEOPLASM MALIGNANT
     Route: 042
     Dates: start: 20130122, end: 20130122
  2. ZOPHREN [Concomitant]
     Indication: PREMEDICATION
     Dates: start: 20130122, end: 20130122
  3. PLITICAN [Concomitant]
     Indication: PREMEDICATION
     Dates: start: 20130122, end: 20130122
  4. SOLUMEDROL [Concomitant]
     Indication: PREMEDICATION
     Dates: start: 20130122, end: 20130122
  5. TAXOL [Concomitant]
     Indication: LUNG NEOPLASM MALIGNANT
     Dates: start: 20130121, end: 20130121

REACTIONS (6)
  - Cough [Recovered/Resolved]
  - Pruritus [Recovered/Resolved]
  - Chills [Recovered/Resolved]
  - Erythema [Recovered/Resolved]
  - Asthenia [None]
  - Drug hypersensitivity [None]
